FAERS Safety Report 16259588 (Version 1)
Quarter: 2019Q2

REPORT INFORMATION
  Report Type: Spontaneous
  Country: US (occurrence: US)
  Receive Date: 20190501
  Receipt Date: 20190501
  Transmission Date: 20190711
  Serious: No
  Sender: FDA-Public Use
  Company Number: US-BAYER-2019-069913

PATIENT
  Age: 65 Year
  Sex: Female
  Weight: 63 kg

DRUGS (1)
  1. MIRALAX [Suspect]
     Active Substance: POLYETHYLENE GLYCOL 3350
     Indication: GASTROINTESTINAL DISORDER
     Dosage: 3/4 OF THE WHITE CAP
     Route: 048
     Dates: start: 2015

REACTIONS (2)
  - Incorrect dosage administered [None]
  - Product use in unapproved indication [Unknown]

NARRATIVE: CASE EVENT DATE: 2015
